FAERS Safety Report 5106007-3 (Version None)
Quarter: 2006Q3

REPORT INFORMATION
  Report Type: 
  Country: None (occurrence: None)
  Receive Date: 20060915
  Receipt Date: 20060905
  Transmission Date: 20061208
  Serious: Yes (Life-Threatening, Hospitalization)
  Sender: FDA-Public Use
  Company Number: CZ-ABBOTT-06P-217-0343066-00

PATIENT
  Sex: Male
  Weight: 81 kg

DRUGS (10)
  1. ZEMPLAR [Suspect]
     Indication: HYPERPARATHYROIDISM SECONDARY
     Route: 042
     Dates: start: 20060405
  2. TORVACARD [Concomitant]
     Indication: HYPERCHOLESTEROLAEMIA
     Route: 048
     Dates: start: 20050101
  3. TENOLOC [Concomitant]
     Indication: HYPERTENSION
     Route: 048
     Dates: start: 20010101
  4. NITRENDIPINE [Concomitant]
     Indication: HYPERTENSION
     Route: 048
     Dates: start: 20050101, end: 20060902
  5. ZOREM [Concomitant]
     Indication: HYPERTENSION
     Route: 048
     Dates: start: 20060902
  6. FUROSEMIDE [Concomitant]
     Indication: HYPERTENSION
     Route: 048
     Dates: start: 20050101
  7. ALLOPURINOL [Concomitant]
     Indication: HYPERTENSION
     Route: 048
     Dates: start: 20050101
  8. DIAZEPAM [Concomitant]
     Indication: INSOMNIA
     Route: 048
  9. SEVELAMER HYDROCHLORIDE [Concomitant]
     Indication: HAEMODIALYSIS
     Route: 048
     Dates: start: 20050101
  10. CA CARBONICUM [Concomitant]
     Indication: HAEMODIALYSIS
     Route: 048
     Dates: start: 20050101

REACTIONS (2)
  - HYPERKALAEMIA [None]
  - PULMONARY OEDEMA [None]
